FAERS Safety Report 7488243-4 (Version None)
Quarter: 2011Q2

REPORT INFORMATION
  Report Type: 
  Country: None (occurrence: None)
  Receive Date: 20110511
  Receipt Date: 20110503
  Transmission Date: 20111010
  Serious: Yes (Hospitalization)
  Sender: FDA-Public Use
  Company Number: GER/UKI/11/0018159

PATIENT
  Age: 82 Year
  Sex: Male

DRUGS (11)
  1. ASPIRIN [Concomitant]
  2. SIMVASTTIN (SIMVASTATIN) [Concomitant]
  3. ACETAMINOPHEN [Concomitant]
  4. OMEPRAZOLE [Concomitant]
  5. DOCUATE SODIUM (DOCUSATE SODIUM) [Concomitant]
  6. ENALARPIL (ENALAPRIL) [Concomitant]
  7. ADCAL-G3 (LEKOVIT CA) [Concomitant]
  8. ATENOLOL [Concomitant]
  9. BENDROFLUAZIDE (BENDROFLUMETHIAZIDE) [Concomitant]
  10. ALENDRONATE SODIUM [Suspect]
     Indication: OSTEOPOROSIS
     Dosage: 70 MG, ORAL
     Route: 048
     Dates: start: 20110331, end: 20110408
  11. CODEINE PHOSPHAGE (CODEINE PHOSPHATE) [Concomitant]

REACTIONS (1)
  - RECTAL HAEMORRHAGE [None]
